FAERS Safety Report 9160469 (Version 1)
Quarter: 2013Q1

REPORT INFORMATION
  Report Type: Spontaneous
  Country: EC (occurrence: EC)
  Receive Date: 20130313
  Receipt Date: 20130313
  Transmission Date: 20140127
  Serious: Yes (Other)
  Sender: FDA-Public Use
  Company Number: PHHY2013EC024256

PATIENT
  Sex: Female

DRUGS (1)
  1. DIOVAN HCT [Suspect]
     Indication: HYPERTENSION
     Dosage: 1 DF (VALS 160MG, HCTZ 12.5MG), QD
     Dates: start: 2008

REACTIONS (2)
  - Diabetes mellitus [Not Recovered/Not Resolved]
  - Urticaria [Unknown]
